FAERS Safety Report 24237213 (Version 1)
Quarter: 2024Q3

REPORT INFORMATION
  Report Type: Report from Study
  Country: CA (occurrence: CA)
  Receive Date: 20240822
  Receipt Date: 20240822
  Transmission Date: 20241017
  Serious: Yes (Hospitalization, Other)
  Sender: ROCHE
  Company Number: CA-ROCHE-10000058456

PATIENT
  Sex: Male

DRUGS (2)
  1. OCREVUS [Suspect]
     Active Substance: OCRELIZUMAB
     Indication: Relapsing-remitting multiple sclerosis
     Dosage: MORE DOSAGE INFORMATION IS 300 MG AT DAY 0 AND 14, THEN 600 MG EVERY 6 MONTHS
     Route: 042
     Dates: start: 20200831
  2. APIXABAN [Concomitant]
     Active Substance: APIXABAN
     Dosage: MORE DOSAGE INFORMATION IS 5MG DAYS 2 1

REACTIONS (4)
  - COVID-19 [Unknown]
  - Pneumonia [Unknown]
  - Pulmonary thrombosis [Unknown]
  - Muscle atrophy [Unknown]
